FAERS Safety Report 7328960-X (Version None)
Quarter: 2011Q1

REPORT INFORMATION
  Report Type: 
  Country: None (occurrence: None)
  Receive Date: 20110225
  Receipt Date: 20110225
  Transmission Date: 20110831
  Serious: Yes (Life-Threatening)
  Sender: FDA-Public Use
  Company Number: None

PATIENT
  Age: 70 Year
  Sex: Male
  Weight: 77.1115 kg

DRUGS (1)
  1. FOCALIN [Suspect]
     Indication: ATTENTION DEFICIT/HYPERACTIVITY DISORDER
     Dosage: 10MG CAPSULE DAILY PO
     Route: 048
     Dates: start: 20110213, end: 20110216

REACTIONS (3)
  - HEART RATE INCREASED [None]
  - FATIGUE [None]
  - HEART RATE IRREGULAR [None]
